FAERS Safety Report 17831035 (Version 2)
Quarter: 2020Q2

REPORT INFORMATION
  Report Type: Report from Study
  Country: CA (occurrence: CA)
  Receive Date: 20200527
  Receipt Date: 20200602
  Transmission Date: 20200714
  Serious: Yes (Other)
  Sender: FDA-Public Use
  Company Number: CA-PFIZER INC-2020206787

PATIENT
  Age: 60 Year
  Sex: Female

DRUGS (6)
  1. ENTYVIO [Suspect]
     Active Substance: VEDOLIZUMAB
     Indication: COLITIS ULCERATIVE
     Dosage: 300 MG (WEEK 0,2,6, EVERY 8 WEEKS)
     Route: 042
     Dates: start: 20190116
  2. ENTYVIO [Suspect]
     Active Substance: VEDOLIZUMAB
     Dosage: 300 MG
     Route: 042
     Dates: start: 20190116
  3. ENTYVIO [Suspect]
     Active Substance: VEDOLIZUMAB
     Dosage: 300 MG, MONTHLY (Q4WEEKS)
     Route: 042
     Dates: start: 20190715
  4. ENTYVIO [Suspect]
     Active Substance: VEDOLIZUMAB
     Dosage: 300 MG, MONTHLY (Q4WEEKS)
     Route: 042
     Dates: start: 20190715
  5. TECTA [Suspect]
     Active Substance: PANTOPRAZOLE MAGNESIUM
     Indication: COUGH
     Dosage: UNK
     Route: 065
  6. ENTYVIO [Suspect]
     Active Substance: VEDOLIZUMAB
     Dosage: 300 MG, MONTHLY (Q4WEEKS)
     Route: 042
     Dates: start: 20190715

REACTIONS (9)
  - Haemorrhoids [Unknown]
  - Off label use [Unknown]
  - Frequent bowel movements [Unknown]
  - Nasopharyngitis [Unknown]
  - Product use in unapproved indication [Unknown]
  - Abdominal pain [Unknown]
  - Stress [Recovering/Resolving]
  - Psoriasis [Recovering/Resolving]
  - Haematochezia [Unknown]

NARRATIVE: CASE EVENT DATE: 201906
